FAERS Safety Report 7124885-3 (Version None)
Quarter: 2010Q4

REPORT INFORMATION
  Report Type: 
  Country: None (occurrence: None)
  Receive Date: 20101129
  Receipt Date: 20101116
  Transmission Date: 20110411
  Serious: No
  Sender: FDA-Public Use
  Company Number: US-ROXANE LABORATORIES, INC.-2010-RO-01522RO

PATIENT
  Sex: Female

DRUGS (8)
  1. PREDNISONE [Suspect]
     Indication: FOCAL SEGMENTAL GLOMERULOSCLEROSIS
     Dosage: 60 MG
     Route: 048
     Dates: start: 20070628
  2. PREDNISONE [Suspect]
     Route: 048
  3. LANTUS [Suspect]
     Indication: TYPE 2 DIABETES MELLITUS
     Route: 058
     Dates: start: 20070701
  4. CELLCEPT [Concomitant]
     Indication: FOCAL SEGMENTAL GLOMERULOSCLEROSIS
     Dates: end: 20080601
  5. LISINOPRIL [Concomitant]
     Indication: HYPERTENSION
  6. NEXIUM [Concomitant]
  7. CLARITIN [Concomitant]
     Indication: SINUS DISORDER
  8. ZETIA [Concomitant]
     Indication: BLOOD CHOLESTEROL INCREASED

REACTIONS (5)
  - ALOPECIA [None]
  - BLOOD GLUCOSE INCREASED [None]
  - CUSHINGOID [None]
  - DIABETES MELLITUS INADEQUATE CONTROL [None]
  - HAIR TEXTURE ABNORMAL [None]
